FAERS Safety Report 9018901 (Version 3)
Quarter: 2013Q2

REPORT INFORMATION
  Report Type: Report from Study
  Country: AU (occurrence: AU)
  Receive Date: 20130118
  Receipt Date: 20130507
  Transmission Date: 20140414
  Serious: Yes (Hospitalization)
  Sender: FDA-Public Use
  Company Number: AU-GILEAD-2013-0067807

PATIENT
  Age: 70 Year
  Sex: Male

DRUGS (4)
  1. AMBRISENTAN [Suspect]
     Indication: PULMONARY ARTERIAL HYPERTENSION
     Dosage: 5MG PER DAY
     Route: 048
     Dates: start: 20121217, end: 20121227
  2. AMBRISENTAN [Suspect]
     Dosage: 2.5MG PER DAY
  3. TADALAFIL [Suspect]
     Indication: PULMONARY ARTERIAL HYPERTENSION
     Dosage: 20MG PER DAY
     Route: 048
     Dates: start: 20121217, end: 20121227
  4. CANDESARTAN [Concomitant]
     Dosage: 2MG PER DAY
     Route: 048
     Dates: start: 201208

REACTIONS (1)
  - Pleuritic pain [Recovered/Resolved]
